FAERS Safety Report 10387374 (Version 1)
Quarter: 2014Q3

REPORT INFORMATION
  Report Type: Spontaneous
  Country: GB (occurrence: GB)
  Receive Date: 20140815
  Receipt Date: 20140815
  Transmission Date: 20150326
  Serious: Yes (Other)
  Sender: FDA-Public Use
  Company Number: GB-ACTAVIS-2014-17497

PATIENT
  Age: 18 Year
  Sex: Male

DRUGS (3)
  1. SALBUTAMOL (UNKNOWN) [Suspect]
     Active Substance: ALBUTEROL
     Indication: ASTHMA
     Dosage: 16 ?G, DAILY; 16 100MICROGRAM PUFFS A DAY
     Route: 055
     Dates: start: 20001014, end: 20140701
  2. CLENIL MODULITE [Concomitant]
     Active Substance: BECLOMETHASONE DIPROPIONATE
     Indication: ASTHMA
     Dosage: 2 DF, BID
     Route: 065
     Dates: start: 20100317, end: 20130624
  3. MONTELUKAST [Suspect]
     Active Substance: MONTELUKAST SODIUM
     Indication: ASTHMA
     Dosage: 10 MG, DAILY
     Route: 048
     Dates: start: 20111125, end: 20140701

REACTIONS (1)
  - Urticaria [Recovered/Resolved]

NARRATIVE: CASE EVENT DATE: 201006
